FAERS Safety Report 13829419 (Version 1)
Quarter: 2017Q3

REPORT INFORMATION
  Report Type: Spontaneous
  Country: US (occurrence: US)
  Receive Date: 20170803
  Receipt Date: 20170803
  Transmission Date: 20171127
  Serious: Yes (Other)
  Sender: FDA-Public Use
  Company Number: None

PATIENT
  Age: 20 Year
  Sex: Female
  Weight: 54.48 kg

DRUGS (1)
  1. MYLAN [Suspect]
     Active Substance: FENTANYL

REACTIONS (1)
  - Needle issue [None]

NARRATIVE: CASE EVENT DATE: 20170802
